FAERS Safety Report 4680833-7 (Version None)
Quarter: 2005Q2

REPORT INFORMATION
  Report Type: 
  Country: None (occurrence: None)
  Receive Date: 20050603
  Receipt Date: 20050524
  Transmission Date: 20051028
  Serious: Yes (Other)
  Sender: FDA-Public Use
  Company Number: CH-ABBOTT-05P-151-0301475-00

PATIENT
  Age: 14 Year
  Sex: Female

DRUGS (4)
  1. DEPAKINE SOLUTION [Suspect]
     Indication: EPILEPSY
     Route: 042
  2. PROPOFOL [Concomitant]
     Indication: ANXIETY DISORDER DUE TO A GENERAL MEDICAL CONDITION
     Dates: start: 20050201
  3. LIORESAL [Concomitant]
     Indication: DRUG USE FOR UNKNOWN INDICATION
  4. DORMICUM [Concomitant]
     Indication: DRUG USE FOR UNKNOWN INDICATION
     Dates: start: 20050201

REACTIONS (3)
  - AGITATION [None]
  - HYPERAMMONAEMIA [None]
  - RESPIRATORY DISORDER [None]
